FAERS Safety Report 5527508-X (Version None)
Quarter: 2007Q4

REPORT INFORMATION
  Report Type: 
  Country: None (occurrence: None)
  Receive Date: 20071128
  Receipt Date: 20071126
  Transmission Date: 20080405
  Serious: Yes (Death)
  Sender: FDA-Public Use
  Company Number: US-ELI_LILLY_AND_COMPANY-US200702000800

PATIENT
  Age: 36 Year
  Sex: Male

DRUGS (5)
  1. ZYPREXA [Suspect]
     Dosage: 10 MG, UNK
     Route: 048
     Dates: end: 20060101
  2. GEODON [Concomitant]
     Route: 048
  3. ATIVAN [Concomitant]
     Route: 048
  4. SEROQUEL [Concomitant]
     Route: 048
  5. REMERON [Concomitant]
     Route: 048

REACTIONS (1)
  - COMPLETED SUICIDE [None]
